FAERS Safety Report 10912504 (Version 4)
Quarter: 2015Q2

REPORT INFORMATION
  Report Type: Spontaneous
  Country: US (occurrence: None)
  Receive Date: 20150310
  Receipt Date: 20150508
  Transmission Date: 20150821
  Serious: Yes (Other)
  Sender: FDA-Public Use
  Company Number: CIO15012788

PATIENT
  Age: 62 Year
  Sex: Female
  Weight: 47.6 kg

DRUGS (2)
  1. NYQUIL COLD AND FLU [Suspect]
     Active Substance: ACETAMINOPHEN\DEXTROMETHORPHAN HYDROBROMIDE\DOXYLAMINE SUCCINATE
     Indication: INFLUENZA
     Dosage: THE RECOMMENDED DOSAGE ONE TIME
     Route: 048
     Dates: start: 20150128, end: 20150128
  2. NYQUIL COLD AND FLU [Suspect]
     Active Substance: ACETAMINOPHEN\DEXTROMETHORPHAN HYDROBROMIDE\DOXYLAMINE SUCCINATE
     Indication: NASOPHARYNGITIS
     Dosage: THE RECOMMENDED DOSAGE ONE TIME
     Route: 048
     Dates: start: 20150128, end: 20150128

REACTIONS (12)
  - Loss of consciousness [None]
  - Impaired work ability [None]
  - Dizziness [None]
  - Computerised tomogram abnormal [None]
  - Vitreous disorder [None]
  - Fall [None]
  - Headache [None]
  - Head injury [None]
  - Post-traumatic amnestic disorder [None]
  - Disturbance in attention [None]
  - Craniocerebral injury [None]
  - Contusion [None]

NARRATIVE: CASE EVENT DATE: 201501
